FAERS Safety Report 5653982-4 (Version None)
Quarter: 2008Q1

REPORT INFORMATION
  Report Type: 
  Country: None (occurrence: None)
  Receive Date: 20080206
  Receipt Date: 20070305
  Transmission Date: 20080703
  Serious: Yes (Hospitalization, Other)
  Sender: FDA-Public Use
  Company Number: US200703001165

PATIENT
  Sex: Female

DRUGS (4)
  1. EVISTA [Suspect]
     Dosage: 60 MG, ORAL
     Route: 048
  2. CARDIZEM [Concomitant]
  3. PROTONIX [Concomitant]
  4. ISOSORB /00586302/ (ISOSORBIDE DINITRATE) [Concomitant]

REACTIONS (1)
  - PULMONARY EMBOLISM [None]
